FAERS Safety Report 8609218-5 (Version None)
Quarter: 2012Q3

REPORT INFORMATION
  Report Type: 
  Country: None (occurrence: None)
  Receive Date: 20120808
  Receipt Date: 20120726
  Transmission Date: 20120928
  Serious: Yes (Hospitalization)
  Sender: FDA-Public Use
  Company Number: 2012MA009552

PATIENT
  Age: 76 Year
  Sex: Male

DRUGS (7)
  1. CANDESARTAN CILEXETIL [Concomitant]
  2. BISOPROLOL FUMARATE [Concomitant]
  3. CITALOPRAM HYDROBROMIDE [Suspect]
     Indication: DEPRESSION
     Dosage: 10 MG;PO
     Route: 048
  4. AMLODIPINE [Concomitant]
  5. SERTRALINE HYDROCHLORIDE [Suspect]
     Indication: DEPRESSION
     Dosage: 50 MG;PO
     Route: 048
     Dates: start: 20111101, end: 20120101
  6. LEVOTHYROXINE SODIUM [Concomitant]
  7. OMEPRAZOLE [Concomitant]

REACTIONS (3)
  - PULMONARY FIBROSIS [None]
  - ALVEOLITIS [None]
  - PNEUMONIA [None]
